FAERS Safety Report 9695187 (Version 2)
Quarter: 2014Q4

REPORT INFORMATION
  Report Type: Report from Study
  Country: CA (occurrence: CA)
  Receive Date: 20131119
  Receipt Date: 20141107
  Transmission Date: 20150529
  Serious: Yes (Death, Hospitalization)
  Sender: FDA-Public Use
  Company Number: CA-JNJFOC-20131109690

PATIENT
  Age: 50 Year
  Sex: Female
  Weight: 50.35 kg

DRUGS (1)
  1. REMICADE [Suspect]
     Active Substance: INFLIXIMAB
     Indication: COLITIS ULCERATIVE
     Route: 042
     Dates: start: 201211

REACTIONS (1)
  - Uterine cancer [Fatal]

NARRATIVE: CASE EVENT DATE: 20131101
